FAERS Safety Report 13449626 (Version 1)
Quarter: 2017Q2

REPORT INFORMATION
  Report Type: Report from Study
  Country: NL (occurrence: NL)
  Receive Date: 20170417
  Receipt Date: 20170417
  Transmission Date: 20170830
  Serious: Yes (Hospitalization)
  Sender: FDA-Public Use
  Company Number: NL-ACTELION-A-NJ2017-152632

PATIENT
  Age: 19 Year
  Sex: Female

DRUGS (1)
  1. VENTAVIS [Suspect]
     Active Substance: ILOPROST
     Indication: PULMONARY ARTERIAL HYPERTENSION
     Dosage: 20 MCG, 6 DD
     Route: 055
     Dates: start: 20140619

REACTIONS (1)
  - Eye abscess [Recovering/Resolving]

NARRATIVE: CASE EVENT DATE: 20170114
